FAERS Safety Report 24561297 (Version 1)
Quarter: 2024Q4

REPORT INFORMATION
  Report Type: Spontaneous
  Country: US (occurrence: None)
  Receive Date: 20241029
  Receipt Date: 20241029
  Transmission Date: 20250115
  Serious: No
  Sender: Public
  Company Number: None

PATIENT
  Sex: Female

DRUGS (1)
  1. ARANESP [Suspect]
     Active Substance: DARBEPOETIN ALFA
     Indication: Iron deficiency anaemia
     Dosage: OTHER STRENGTH : 60MCG/.3ML;?FREQUENCY : WEEKLY;?
     Route: 058
     Dates: start: 202407

REACTIONS (1)
  - White blood cell count decreased [None]
